FAERS Safety Report 5656160-8 (Version None)
Quarter: 2008Q1

REPORT INFORMATION
  Report Type: 
  Country: None (occurrence: None)
  Receive Date: 20080305
  Receipt Date: 20080220
  Transmission Date: 20080703
  Serious: Yes (Other)
  Sender: FDA-Public Use
  Company Number: 1-15803856

PATIENT
  Sex: Male
  Weight: 86.1834 kg

DRUGS (6)
  1. FENTANYL [Suspect]
     Indication: BACK PAIN
     Dosage: 25 MCG/HR, TRANSDERMAL
     Route: 062
     Dates: start: 20071114, end: 20071220
  2. TESTOSTERONE TOPICAL [Concomitant]
  3. VICODIN (ACETAMINOPHEN AND HYDROCODONE) [Concomitant]
  4. CELEBREX [Concomitant]
  5. CARDURA [Concomitant]
  6. UNSPECIFIED VITAMINS [Concomitant]

REACTIONS (8)
  - ANOREXIA [None]
  - DYSPNOEA [None]
  - FEELING ABNORMAL [None]
  - INSOMNIA [None]
  - RESTLESSNESS [None]
  - SOMNOLENCE [None]
  - TREMOR [None]
  - URTICARIA [None]
